FAERS Safety Report 18062192 (Version 1)
Quarter: 2020Q3

REPORT INFORMATION
  Report Type: Spontaneous
  Country: DE (occurrence: AU)
  Receive Date: 20200723
  Receipt Date: 20200723
  Transmission Date: 20201103
  Serious: Yes (Other)
  Sender: FDA-Public Use
  Company Number: AU-ELI_LILLY_AND_COMPANY-AU202007009311

PATIENT
  Age: 57 Year
  Sex: Male

DRUGS (5)
  1. 5 FU [Concomitant]
     Active Substance: FLUOROURACIL
     Indication: COLORECTAL CANCER METASTATIC
     Dosage: UNK, 2/M
     Route: 040
     Dates: start: 201805
  2. IRINOTECAN [Concomitant]
     Active Substance: IRINOTECAN
     Indication: COLORECTAL CANCER METASTATIC
     Dosage: UNK, 2/M
     Dates: start: 201903
  3. ERBITUX [Suspect]
     Active Substance: CETUXIMAB
     Indication: COLORECTAL CANCER METASTATIC
     Dosage: UNK UNK, 2/M
     Dates: start: 201903
  4. FOLINIC ACID [Concomitant]
     Active Substance: LEUCOVORIN
     Indication: COLORECTAL CANCER METASTATIC
     Dosage: UNK, 2/M
     Dates: start: 201805
  5. 5 FU [Concomitant]
     Active Substance: FLUOROURACIL
     Dosage: UNK, 2/M
     Route: 041
     Dates: start: 201805

REACTIONS (4)
  - Neuropathy peripheral [Unknown]
  - Off label use [Unknown]
  - Palmar-plantar erythrodysaesthesia syndrome [Unknown]
  - Dermatitis acneiform [Unknown]
